FAERS Safety Report 10098108 (Version 1)
Quarter: 2014Q2

REPORT INFORMATION
  Report Type: Spontaneous
  Country: ES (occurrence: ES)
  Receive Date: 20140423
  Receipt Date: 20140423
  Transmission Date: 20141212
  Serious: Yes (Death)
  Sender: FDA-Public Use
  Company Number: ES-ROCHE-1382769

PATIENT
  Age: 38 Year
  Sex: Female

DRUGS (15)
  1. RITUXIMAB [Suspect]
     Indication: B-CELL LYMPHOMA
     Dosage: AFTER DIAGNOSIS IN OCT/2009, PATIENT WAS STARTED ON R-CHOP (CYCLOPHOSPHAMIDE/HYDROXYDAUNORUBICIN/ONC
     Route: 065
  2. RITUXIMAB [Suspect]
     Dosage: AFTER ONE YEAR (JAN/2011) , AFTER RECUURENCE OF NON- HODGKIN LYMPHOMA (NHL) SEOND LINE ESHAP (ETOPOS
     Route: 065
  3. RITUXIMAB [Suspect]
     Dosage: AFTER 6 MONTHS, AN AUTOLOGUS PERIPHERAL BLOOD STEMCELL TRANSPLANT (PBSCT) IS PERFORMED, FOLLOWED BY
     Route: 065
  4. CYCLOPHOSPHAMIDE [Suspect]
     Indication: B-CELL LYMPHOMA
     Route: 065
  5. CYCLOPHOSPHAMIDE [Suspect]
     Dosage: AFTER SIXTH CYCLES, TWO MORE CYCLES OF  COP REGIMEN (CYCLOPHOSPHAMIDE/ONCOVIN/PREDNISONE) WAS ADMINI
     Route: 065
  6. HYDROXYDAUNORUBICIN [Suspect]
     Indication: B-CELL LYMPHOMA
     Route: 065
  7. ONCOVIN [Suspect]
     Indication: B-CELL LYMPHOMA
     Route: 065
  8. ONCOVIN [Suspect]
     Dosage: AFTER SIXTH CYCLES, TWO MORE CYCLES OF  COP REGIMEN (CYCLOPHOSPHAMIDE/ONCOVIN/PREDNISONE) WAS ADMINI
     Route: 065
  9. PREDNISONE [Suspect]
     Indication: B-CELL LYMPHOMA
     Route: 065
  10. PREDNISONE [Suspect]
     Dosage: AFTER SIXTH CYCLES, TWO MORE CYCLES OF  COP REGIMEN (CYCLOPHOSPHAMIDE/ONCOVIN/PREDNISONE) WAS ADMINI
     Route: 065
  11. ETOPOSIDE [Suspect]
     Indication: B-CELL LYMPHOMA
     Route: 065
  12. CYTARABINE [Suspect]
     Indication: B-CELL LYMPHOMA
     Route: 065
  13. CISPLATIN [Suspect]
     Indication: B-CELL LYMPHOMA
     Route: 065
  14. CISPLATIN [Suspect]
     Dosage: AFTER ONE YEAR (JAN/2011) , AFTER RECUURENCE OF NON- HODGKIN LYMPHOMA (NHL) SEOND LINE ESHAP (ETOPOS
     Route: 065
  15. PEGFILGRASTIM [Concomitant]
     Route: 065

REACTIONS (1)
  - Progressive multifocal leukoencephalopathy [Fatal]
